FAERS Safety Report 9805839 (Version 2)
Quarter: 2014Q2

REPORT INFORMATION
  Report Type: Spontaneous
  Country: FR (occurrence: FR)
  Receive Date: 20140109
  Receipt Date: 20140619
  Transmission Date: 20141212
  Serious: Yes (Death, Hospitalization)
  Sender: FDA-Public Use
  Company Number: PHHY2014FR001667

PATIENT
  Age: 80 Year
  Sex: Male

DRUGS (3)
  1. TEGRETOL [Suspect]
     Indication: TRIGEMINAL NEURALGIA
     Dosage: 2 DF, QD
     Route: 048
     Dates: start: 2004, end: 20131217
  2. PARACETAMOL [Concomitant]
     Indication: PAIN
     Dosage: 1 G, QD IF PAIN
  3. FORLAX [Concomitant]
     Dosage: UNK UKN, UNK

REACTIONS (2)
  - Pulmonary fibrosis [Fatal]
  - Neutropenia [Fatal]
